FAERS Safety Report 20721042 (Version 4)
Quarter: 2022Q2

REPORT INFORMATION
  Report Type: Spontaneous
  Country: US (occurrence: None)
  Receive Date: 20220418
  Receipt Date: 20220425
  Transmission Date: 20220721
  Serious: Yes (Life-Threatening)
  Sender: FDA-Public Use
  Company Number: 2022A123070

PATIENT
  Age: 56 Year
  Sex: Female
  Weight: 61.7 kg

DRUGS (9)
  1. SAPHNELO [Suspect]
     Active Substance: ANIFROLUMAB-FNIA
     Indication: Systemic lupus erythematosus
     Route: 042
     Dates: start: 20220302, end: 20220302
  2. FOLIC ACID [Concomitant]
     Active Substance: FOLIC ACID
     Route: 048
     Dates: start: 20200417
  3. LORAZEPAM [Concomitant]
     Active Substance: LORAZEPAM
     Indication: Sleep disorder
     Dosage: 1.0MG AS REQUIRED
     Route: 048
     Dates: start: 20210511
  4. HYDROXYCHLOROQUINE [Concomitant]
     Active Substance: HYDROXYCHLOROQUINE
     Route: 048
     Dates: start: 20210424
  5. BENLYSTA [Concomitant]
     Active Substance: BELIMUMAB
     Route: 058
     Dates: start: 20220314
  6. NAPROXEM SODIUM [Concomitant]
     Route: 065
     Dates: start: 20200417
  7. PREDNISONE [Concomitant]
     Active Substance: PREDNISONE
     Dosage: 1 TO 2 WEEKS THEN TAPER AS DIRECTED
     Route: 048
     Dates: start: 20220308
  8. AMLODIPINE BESYLATE AND BENAZEPRIL HYDROCHLORIDE [Concomitant]
     Active Substance: AMLODIPINE BESYLATE\BENAZEPRIL HYDROCHLORIDE
     Dosage: AMLODIPINE 5 MG-BENAZEPRIL 40 MG
     Route: 048
     Dates: start: 20200930
  9. ACTHAR [Concomitant]
     Active Substance: CORTICOTROPIN
     Dosage: 80 UNIST TWICE WEEKLY
     Route: 058
     Dates: start: 20210411

REACTIONS (12)
  - Anaphylactic reaction [Recovered/Resolved]
  - Flushing [Unknown]
  - Erythema [Unknown]
  - Vomiting [Unknown]
  - Diarrhoea [Unknown]
  - Hypoaesthesia [Unknown]
  - Arthralgia [Unknown]
  - Swelling [Unknown]
  - Asthenia [Unknown]
  - Disorientation [Unknown]
  - Pain in extremity [Not Recovered/Not Resolved]
  - Headache [Not Recovered/Not Resolved]

NARRATIVE: CASE EVENT DATE: 20220203
